FAERS Safety Report 8952735 (Version 3)
Quarter: 2013Q3

REPORT INFORMATION
  Report Type: Spontaneous
  Country: JP (occurrence: JP)
  Receive Date: 20121205
  Receipt Date: 20130808
  Transmission Date: 20140515
  Serious: Yes (Hospitalization)
  Sender: FDA-Public Use
  Company Number: JP-JNJFOC-20121200203

PATIENT
  Age: 25 Year
  Sex: Female

DRUGS (4)
  1. RISPERDAL [Suspect]
     Indication: SCHIZOPHRENIA
     Route: 048
     Dates: start: 20091215, end: 20091221
  2. OLANZAPINE [Suspect]
     Indication: SCHIZOPHRENIA
     Route: 048
     Dates: start: 20091215, end: 20110513
  3. ARIPIPRAZOLE [Concomitant]
     Indication: SCHIZOPHRENIA
     Route: 048
  4. BLONANSERIN [Concomitant]
     Route: 048

REACTIONS (1)
  - Therapeutic response decreased [Recovered/Resolved]
